FAERS Safety Report 15403704 (Version 1)
Quarter: 2018Q3

REPORT INFORMATION
  Report Type: Spontaneous
  Country: US (occurrence: US)
  Receive Date: 20180919
  Receipt Date: 20180919
  Transmission Date: 20181010
  Serious: No
  Sender: FDA-Public Use
  Company Number: US-ALLERGAN-1813034US

PATIENT
  Age: 73 Year
  Sex: Female

DRUGS (2)
  1. PREDNISONE. [Concomitant]
     Active Substance: PREDNISONE
     Indication: PROPHYLAXIS
     Dosage: UNK, QID
     Dates: start: 20180302, end: 20180306
  2. KETOROLAC TROMETHAMINE 0.4% [Suspect]
     Active Substance: KETOROLAC TROMETHAMINE
     Indication: PROPHYLAXIS
     Dosage: UNK, TID
     Route: 047
     Dates: start: 20180302, end: 20180307

REACTIONS (2)
  - Eye irritation [Recovered/Resolved]
  - Eye pain [Recovering/Resolving]

NARRATIVE: CASE EVENT DATE: 20180307
